FAERS Safety Report 7756981-1 (Version None)
Quarter: 2011Q3

REPORT INFORMATION
  Report Type: 
  Country: None (occurrence: None)
  Receive Date: 20110916
  Receipt Date: 20110916
  Transmission Date: 20111222
  Serious: No
  Sender: FDA-Public Use
  Company Number: None

PATIENT
  Sex: Female
  Weight: 110.67 kg

DRUGS (1)
  1. FLUCONAZOLE [Suspect]
     Dosage: ?
     Route: 048

REACTIONS (1)
  - SKIN EXFOLIATION [None]
